FAERS Safety Report 6394207-4 (Version None)
Quarter: 2009Q4

REPORT INFORMATION
  Report Type: 
  Country: None (occurrence: None)
  Receive Date: 20091008
  Receipt Date: 20091002
  Transmission Date: 20100525
  Serious: Yes (Other)
  Sender: FDA-Public Use
  Company Number: US-GILEAD-2009-0024266

PATIENT
  Sex: Female

DRUGS (12)
  1. LETAIRIS [Suspect]
     Indication: PULMONARY ARTERIAL HYPERTENSION
     Route: 048
     Dates: start: 20090901
  2. COUMADIN [Concomitant]
  3. DILTIAZEM [Concomitant]
  4. COZAAR [Concomitant]
  5. LABETALOL HCL [Concomitant]
  6. AVALIDE [Concomitant]
  7. SYNTHROID [Concomitant]
  8. TYLENOL EX STRENGTH [Concomitant]
  9. PROTONIX [Concomitant]
  10. VITAMIN D [Concomitant]
  11. FLUOROMETHOLONE [Concomitant]
  12. FISH OIL CAP [Concomitant]

REACTIONS (3)
  - FLUID RETENTION [None]
  - LUNG DISORDER [None]
  - SWELLING [None]
